FAERS Safety Report 13410576 (Version 3)
Quarter: 2019Q4

REPORT INFORMATION
  Report Type: Spontaneous
  Country: US (occurrence: US)
  Receive Date: 20170406
  Receipt Date: 20191119
  Transmission Date: 20200122
  Serious: No
  Sender: FDA-Public Use
  Company Number: US-JNJFOC-20170300271

PATIENT
  Sex: Male

DRUGS (5)
  1. RISPERIDONE. [Suspect]
     Active Substance: RISPERIDONE
     Indication: BEHAVIOUR DISORDER
     Dosage: 0.25 MG AND 1 MG
     Route: 048
     Dates: start: 20030417, end: 20051111
  2. RISPERIDONE. [Suspect]
     Active Substance: RISPERIDONE
     Dosage: 0.25 MG AND 1 MG
     Route: 048
     Dates: start: 20060523, end: 20060608
  3. RISPERIDONE. [Suspect]
     Active Substance: RISPERIDONE
     Indication: AGGRESSION
     Dosage: 0.25 MG AND 1 MG
     Route: 048
     Dates: end: 200603
  4. RISPERIDONE. [Suspect]
     Active Substance: RISPERIDONE
     Indication: BIPOLAR DISORDER
     Dosage: 0.25 MG AND 1 MG
     Route: 048
     Dates: start: 20000817
  5. RISPERIDONE. [Suspect]
     Active Substance: RISPERIDONE
     Dosage: 0.25 MG AND 1 MG
     Route: 048
     Dates: start: 20070612, end: 200808

REACTIONS (2)
  - Gynaecomastia [Unknown]
  - Emotional distress [Unknown]
